FAERS Safety Report 22084923 (Version 2)
Quarter: 2023Q2

REPORT INFORMATION
  Report Type: Spontaneous
  Country: JP (occurrence: JP)
  Receive Date: 20230310
  Receipt Date: 20230406
  Transmission Date: 20230721
  Serious: Yes (Hospitalization)
  Sender: FDA-Public Use
  Company Number: JP-ELI_LILLY_AND_COMPANY-JP202302013345

PATIENT
  Age: 58 Year
  Sex: Male

DRUGS (2)
  1. HUMALOG [Suspect]
     Active Substance: INSULIN LISPRO
     Indication: Diabetes mellitus
     Dosage: UNK
     Route: 058
     Dates: start: 20180828, end: 20181118
  2. HUMALOG [Suspect]
     Active Substance: INSULIN LISPRO
     Dosage: 4 INTERNATIONAL UNIT, TID
     Route: 058
     Dates: start: 20221128

REACTIONS (2)
  - Dermatitis exfoliative generalised [Recovered/Resolved]
  - Pruritus [Unknown]

NARRATIVE: CASE EVENT DATE: 20230123
